FAERS Safety Report 9203387 (Version 1)
Quarter: 2013Q2

REPORT INFORMATION
  Report Type: Spontaneous
  Country: BE (occurrence: BE)
  Receive Date: 20130402
  Receipt Date: 20130402
  Transmission Date: 20140414
  Serious: No
  Sender: FDA-Public Use
  Company Number: BE-009507513-1304BEL000130

PATIENT
  Age: 42 Year
  Sex: Female

DRUGS (3)
  1. SYCREST [Suspect]
     Indication: BIPOLAR I DISORDER
     Dosage: 5 MG, QD
     Route: 060
     Dates: start: 20130326
  2. LAMBIPOL [Concomitant]
     Indication: BIPOLAR I DISORDER
     Route: 048
  3. ZYPREXA [Concomitant]
     Indication: BIPOLAR I DISORDER
     Dosage: UNK
     Dates: end: 20130325

REACTIONS (2)
  - Hyperventilation [Unknown]
  - Dysphagia [Unknown]
